FAERS Safety Report 7437857-6 (Version None)
Quarter: 2011Q2

REPORT INFORMATION
  Report Type: 
  Country: None (occurrence: None)
  Receive Date: 20110426
  Receipt Date: 20110418
  Transmission Date: 20111010
  Serious: Yes (Death)
  Sender: FDA-Public Use
  Company Number: A0923359A

PATIENT
  Age: 63 Year
  Sex: Male

DRUGS (2)
  1. UNSPECIFIED MEDICATIONS [Concomitant]
  2. MEPRON [Suspect]
     Route: 048
     Dates: start: 20110412, end: 20110412

REACTIONS (2)
  - CIRCULATORY COLLAPSE [None]
  - DEATH [None]
